FAERS Safety Report 4355877-5 (Version None)
Quarter: 2004Q2

REPORT INFORMATION
  Report Type: 
  Country: None (occurrence: None)
  Receive Date: 20040507
  Receipt Date: 20040507
  Transmission Date: 20050107
  Serious: Yes (Hospitalization)
  Sender: FDA-Public Use
  Company Number: None

PATIENT
  Age: 80 Year
  Sex: Male

DRUGS (13)
  1. ROFECOXIB [Suspect]
     Indication: OSTEOARTHRITIS
     Dosage: 25 MG DAILY ORAL
     Route: 048
     Dates: start: 20020101, end: 20040328
  2. ALENDRONATE SODIUM [Concomitant]
  3. ASPIRIN [Concomitant]
  4. LISINOPRIL [Concomitant]
  5. ATENOLOL [Concomitant]
  6. FERROUS SULFATE TAB [Concomitant]
  7. MEGACE [Concomitant]
  8. M.V.I. [Concomitant]
  9. TRAMADOL HCL [Concomitant]
  10. GABAPENTIN [Concomitant]
  11. CACO3/VITAMIN D [Concomitant]
  12. VITAMIN C [Concomitant]
  13. AMITRIPTYLINE HCL [Concomitant]

REACTIONS (5)
  - BLOOD PRESSURE DECREASED [None]
  - HEART RATE DECREASED [None]
  - HELICOBACTER INFECTION [None]
  - MENTAL STATUS CHANGES [None]
  - UPPER GASTROINTESTINAL HAEMORRHAGE [None]
